FAERS Safety Report 11752192 (Version 1)
Quarter: 2015Q4

REPORT INFORMATION
  Report Type: Spontaneous
  Country: JP (occurrence: JP)
  Receive Date: 20151118
  Receipt Date: 20151118
  Transmission Date: 20160304
  Serious: Yes (Hospitalization, Other)
  Sender: FDA-Public Use
  Company Number: PHJP2005JP000994

PATIENT
  Age: 78 Year
  Sex: Male
  Weight: 51 kg

DRUGS (4)
  1. NIFLEC [Suspect]
     Active Substance: BICARBONATE ION\POLYETHYLENE GLYCOLS\POTASSIUM CATION\SODIUM CHLORIDE\SODIUM SULFATE ANHYDROUS
     Indication: ENDOSCOPY LARGE BOWEL
     Dosage: UNK UKN, QD
     Route: 048
  2. CEFMETAZON [Concomitant]
     Active Substance: CEFMETAZOLE SODIUM
     Indication: PRODUCT USED FOR UNKNOWN INDICATION
     Dosage: UNK UKN, UNK
  3. PURSENNIDE TAB [Suspect]
     Active Substance: SENNOSIDES A AND B
     Indication: PRODUCT USED FOR UNKNOWN INDICATION
     Route: 048
  4. SODIUM PICOSULFATE [Suspect]
     Active Substance: SODIUM PICOSULFATE
     Indication: ENDOSCOPY LARGE BOWEL
     Route: 048

REACTIONS (7)
  - Skin necrosis [Recovering/Resolving]
  - Mucosal erosion [Recovering/Resolving]
  - Proctalgia [Recovering/Resolving]
  - Pyrexia [Recovering/Resolving]
  - Abdominal pain [Recovering/Resolving]
  - Hepatic enzyme increased [Recovering/Resolving]
  - Proctitis [Recovered/Resolved]
